FAERS Safety Report 4494300-7 (Version None)
Quarter: 2004Q4

REPORT INFORMATION
  Report Type: 
  Country: None (occurrence: None)
  Receive Date: 20041105
  Receipt Date: 20041007
  Transmission Date: 20050328
  Serious: Yes (Hospitalization)
  Sender: FDA-Public Use
  Company Number: US-GLAXOSMITHKLINE-A0528998A

PATIENT
  Age: 8 Year
  Sex: Male
  Weight: 20.7 kg

DRUGS (3)
  1. ADVAIR [Suspect]
     Indication: ASTHMA
     Route: 055
     Dates: start: 20031013, end: 20041009
  2. NASONEX [Concomitant]
     Dosage: 1SPR PER DAY
     Route: 045
     Dates: start: 20031201, end: 20040901
  3. SINGULAIR [Concomitant]
     Indication: ASTHMA
     Dosage: 5MG AT NIGHT
     Route: 048
     Dates: start: 20031001, end: 20040901

REACTIONS (5)
  - ACUTE SINUSITIS [None]
  - BLOOD IMMUNOGLOBULIN E INCREASED [None]
  - BLOOD PRESSURE INCREASED [None]
  - HEADACHE [None]
  - PHAEOCHROMOCYTOMA [None]
